FAERS Safety Report 9475527 (Version 1)
Quarter: 2013Q3

REPORT INFORMATION
  Report Type: Spontaneous
  Country: GB (occurrence: GB)
  Receive Date: 20130826
  Receipt Date: 20130826
  Transmission Date: 20140515
  Serious: Yes (Other)
  Sender: FDA-Public Use
  Company Number: GB-JNJFOC-20130808630

PATIENT
  Age: 71 Year
  Sex: Male

DRUGS (4)
  1. NICORETTE QUICKMIST 1MG [Suspect]
     Indication: SMOKING CESSATION THERAPY
     Route: 065
     Dates: start: 20130528
  2. NICORETTE INVISI 15MG PATCH [Suspect]
     Route: 065
  3. NICORETTE INVISI 15MG PATCH [Suspect]
     Indication: SMOKING CESSATION THERAPY
     Route: 065
     Dates: end: 20130607
  4. ANTACID [Suspect]
     Indication: PRODUCT USED FOR UNKNOWN INDICATION
     Route: 065

REACTIONS (3)
  - Laboratory test abnormal [Unknown]
  - Gastric disorder [Not Recovered/Not Resolved]
  - Frequent bowel movements [Not Recovered/Not Resolved]
